FAERS Safety Report 23312570 (Version 2)
Quarter: 2024Q3

REPORT INFORMATION
  Report Type: Spontaneous
  Country: US (occurrence: US)
  Receive Date: 20231219
  Receipt Date: 20240823
  Transmission Date: 20241016
  Serious: Yes (Other)
  Sender: APOTEX
  Company Number: US-APOTEX-2023AP018146

PATIENT
  Age: 63 Year
  Sex: Male

DRUGS (1)
  1. BORTEZOMIB [Suspect]
     Active Substance: BORTEZOMIB
     Indication: Plasma cell myeloma
     Dosage: 31.2 MILLIGRAM/SQ. METER, B.I.WK.
     Route: 058

REACTIONS (1)
  - Autonomic neuropathy [Unknown]
